FAERS Safety Report 5845757-8 (Version None)
Quarter: 2008Q3

REPORT INFORMATION
  Report Type: 
  Country: None (occurrence: None)
  Receive Date: 20080814
  Receipt Date: 20080805
  Transmission Date: 20090109
  Serious: Yes (Hospitalization)
  Sender: FDA-Public Use
  Company Number: CA-ABBOTT-08P-028-0468907-00

PATIENT
  Sex: Male
  Weight: 59.02 kg

DRUGS (19)
  1. LUPRON DEPOT [Suspect]
     Indication: DRUG USE FOR UNKNOWN INDICATION
     Route: 050
     Dates: start: 20071115, end: 20080423
  2. MORPHINE [Concomitant]
     Indication: PAIN
     Dosage: 1-2 TABS EVERY FOUR HOURS AS NEEDED
  3. DURAGESIC PATCH 100MCG + FENTANYL 25MCG [Concomitant]
     Indication: PAIN MANAGEMENT
     Dosage: TO BE REPLACED Q 72 HOURS /ROTATED SITES
     Route: 062
  4. VITALUX + LUTELNE LA [Concomitant]
     Indication: DRUG USE FOR UNKNOWN INDICATION
     Route: 048
  5. MULTI-VITAMINS [Concomitant]
     Indication: DRUG USE FOR UNKNOWN INDICATION
     Route: 048
  6. PANTOPRAZOLE [Concomitant]
     Indication: DRUG USE FOR UNKNOWN INDICATION
     Route: 048
  7. DOCUSATE [Concomitant]
     Indication: DRUG USE FOR UNKNOWN INDICATION
     Dosage: ONE TO TWO CAPS TWICE PER DAY
     Route: 048
  8. SENNA ALEXANDRINA [Concomitant]
     Indication: DRUG USE FOR UNKNOWN INDICATION
     Dosage: ONE TO TWO TABS TWICE PER DAY
     Route: 048
  9. PILOCARPINE HYDROCHLORIDE [Concomitant]
     Indication: DRUG USE FOR UNKNOWN INDICATION
     Route: 048
  10. LORAZEPAM [Concomitant]
     Indication: INSOMNIA
     Dosage: 1MG AT NIGHT AS NEEDED
     Route: 048
  11. FUROSEMIDE [Concomitant]
     Indication: DRUG USE FOR UNKNOWN INDICATION
     Dosage: ONE DAILY IN THE AM
     Route: 048
  12. POTASSIUM CHLORIDE [Concomitant]
     Indication: DRUG USE FOR UNKNOWN INDICATION
     Route: 048
  13. PREDNISONE TAB [Concomitant]
     Indication: DRUG USE FOR UNKNOWN INDICATION
     Dosage: ONE TO TWO TABS TWICE PER DAY
     Route: 048
  14. DEXAMYTREX [Concomitant]
     Indication: DRUG USE FOR UNKNOWN INDICATION
     Dosage: 4MG 2X DAILY, FOR 3 DAYS POST-CHEMO
  15. DUODERM HYDROACTIVE [Concomitant]
     Indication: DRUG USE FOR UNKNOWN INDICATION
     Dosage: GEL APPLIED ON WOUND DAILY
  16. CALCITONIN SALMON [Concomitant]
     Indication: DRUG USE FOR UNKNOWN INDICATION
     Dosage: 200IU, 2 SPRAYS DAILY (ALTER. NARES)
     Route: 045
  17. CALMAG D [Concomitant]
     Indication: DRUG USE FOR UNKNOWN INDICATION
     Route: 048
  18. CHEMOTHERAPY [Concomitant]
     Indication: DRUG USE FOR UNKNOWN INDICATION
  19. DRESSING SUPPLIES [Concomitant]
     Indication: WOUND

REACTIONS (2)
  - BACK PAIN [None]
  - UNEVALUABLE EVENT [None]
